FAERS Safety Report 18681729 (Version 1)
Quarter: 2020Q4

REPORT INFORMATION
  Report Type: Spontaneous
  Country: US (occurrence: US)
  Receive Date: 20201229
  Receipt Date: 20201229
  Transmission Date: 20210114
  Serious: No
  Sender: FDA-Public Use
  Company Number: None

PATIENT
  Age: 23 Year
  Sex: Female
  Weight: 52 kg

DRUGS (1)
  1. HYALURONIDASE [Suspect]
     Active Substance: HYALURONIDASE

REACTIONS (4)
  - Inflammation [None]
  - Collagen disorder [None]
  - Retinal dystrophy [None]
  - Blood immunoglobulin E increased [None]

NARRATIVE: CASE EVENT DATE: 20200808
